FAERS Safety Report 15609263 (Version 2)
Quarter: 2018Q4

REPORT INFORMATION
  Report Type: Report from Study
  Country: US (occurrence: US)
  Receive Date: 20181112
  Receipt Date: 20181130
  Transmission Date: 20190205
  Serious: Yes (Hospitalization)
  Sender: FDA-Public Use
  Company Number: US-BAUSCH-BL-2018-031045

PATIENT
  Sex: Male

DRUGS (1)
  1. SILIQ [Suspect]
     Active Substance: BRODALUMAB
     Indication: PRODUCT USED FOR UNKNOWN INDICATION
     Dosage: STRENGTH: 210 MG/1.5ML SOSY. AT WEEK 0, 1 AND 2 AS DIRECTED
     Route: 058

REACTIONS (2)
  - Atypical pneumonia [Unknown]
  - Blood pressure abnormal [Unknown]
